FAERS Safety Report 4276688-5 (Version None)
Quarter: 2004Q1

REPORT INFORMATION
  Report Type: 
  Country: None (occurrence: None)
  Receive Date: 20040120
  Receipt Date: 20040105
  Transmission Date: 20041129
  Serious: Yes (Hospitalization, Disabling)
  Sender: FDA-Public Use
  Company Number: S04-SWI-00129-01

PATIENT
  Age: 63 Year
  Sex: Male

DRUGS (13)
  1. SEROPRAM (CITALOPRAM HYDROBROMIDE) [Suspect]
     Indication: DEPRESSION
     Dosage: 20 MG QD PO
     Route: 048
     Dates: start: 20030930
  2. TEGRETOL [Suspect]
     Indication: NEURALGIA
     Dosage: 200 MG QD PO
     Route: 048
     Dates: start: 19910101, end: 20031106
  3. ALLOPURINOL [Suspect]
     Dosage: 300 MG QD PO
     Route: 048
     Dates: end: 20031106
  4. ISOPTIN [Suspect]
     Indication: ANGINA PECTORIS
     Dosage: 120 MG QD PO
     Route: 048
     Dates: start: 20031022, end: 20031106
  5. ACETAMINOPHEN [Suspect]
     Indication: PAIN
     Dosage: 500 MG QID PO
     Route: 048
  6. ZOCOR 40 (SIMVASTATIN) [Concomitant]
  7. ASPIRIN [Concomitant]
  8. CORVATION 4 (MOLSIDOMINE) [Concomitant]
  9. XANAX [Concomitant]
  10. TENORMIN [Concomitant]
  11. NITROGLYCERIN ^A.L^ (GLYCERYL TRINITRATE) [Concomitant]
  12. PONSTAN (MEFENAMIC ACID) [Concomitant]
  13. PODOMEXEF (CEFPODOXIME PROXETIL) [Concomitant]

REACTIONS (4)
  - ANGINA UNSTABLE [None]
  - ANTINUCLEAR ANTIBODY POSITIVE [None]
  - APLASTIC ANAEMIA [None]
  - PANCYTOPENIA [None]
